FAERS Safety Report 9772136 (Version 1)
Quarter: 2013Q4

REPORT INFORMATION
  Report Type: Spontaneous
  Country: US (occurrence: None)
  Receive Date: 20131218
  Receipt Date: 20131218
  Transmission Date: 20140711
  Serious: Yes (Disabling)
  Sender: FDA-Public Use
  Company Number: None

PATIENT
  Age: 35 Year
  Sex: Female
  Weight: 58.97 kg

DRUGS (1)
  1. MIRENA IUD [Suspect]

REACTIONS (9)
  - Alopecia [None]
  - Ovarian cyst [None]
  - Pain [None]
  - Dyspareunia [None]
  - Back pain [None]
  - Insomnia [None]
  - Affective disorder [None]
  - Medical device complication [None]
  - Autoimmune disorder [None]
